FAERS Safety Report 7256309-X (Version None)
Quarter: 2011Q1

REPORT INFORMATION
  Report Type: 
  Country: None (occurrence: None)
  Receive Date: 20110129
  Receipt Date: 20100524
  Transmission Date: 20110831
  Serious: No
  Sender: FDA-Public Use
  Company Number: US-ABBOTT-10P-163-0646537-00

PATIENT
  Sex: Female

DRUGS (2)
  1. UNKNOWN NSAIDS (NON-ABBOTT) [Suspect]
     Indication: PRODUCT USED FOR UNKNOWN INDICATION
  2. HUMIRA [Suspect]
     Indication: PRODUCT USED FOR UNKNOWN INDICATION

REACTIONS (2)
  - IRON DEFICIENCY ANAEMIA [None]
  - GASTROINTESTINAL HAEMORRHAGE [None]
